FAERS Safety Report 14585365 (Version 2)
Quarter: 2018Q1

REPORT INFORMATION
  Report Type: Spontaneous
  Country: US (occurrence: US)
  Receive Date: 20180301
  Receipt Date: 20180327
  Transmission Date: 20180509
  Serious: Yes (Other)
  Sender: FDA-Public Use
  Company Number: US-ASTELLAS-2018US005531

PATIENT
  Age: 88 Year
  Sex: Male

DRUGS (1)
  1. XTANDI [Suspect]
     Active Substance: ENZALUTAMIDE
     Indication: PRODUCT USED FOR UNKNOWN INDICATION
     Dosage: UNK UNK, UNKNOWN FREQ.
     Route: 065

REACTIONS (7)
  - Thrombosis [Unknown]
  - Urinary retention [Unknown]
  - Somnolence [Unknown]
  - Cystitis [Recovered/Resolved]
  - Blood iron decreased [Unknown]
  - Fatigue [Unknown]
  - Device related infection [Recovered/Resolved]

NARRATIVE: CASE EVENT DATE: 20171123
